FAERS Safety Report 12939847 (Version 2)
Quarter: 2017Q1

REPORT INFORMATION
  Report Type: Spontaneous
  Country: US (occurrence: US)
  Receive Date: 20161115
  Receipt Date: 20170109
  Transmission Date: 20170428
  Serious: Yes (Other)
  Sender: FDA-Public Use
  Company Number: US-SHIRE-US201616743

PATIENT
  Age: 40 Year
  Sex: Female

DRUGS (1)
  1. VYVANSE [Suspect]
     Active Substance: LISDEXAMFETAMINE DIMESYLATE
     Indication: BINGE EATING
     Dosage: 50 MG, 1X/DAY:QD
     Route: 048

REACTIONS (5)
  - Malabsorption [Unknown]
  - Conjunctival haemorrhage [Unknown]
  - Visual impairment [Unknown]
  - Weight increased [Unknown]
  - Depression [Unknown]
